FAERS Safety Report 6341527-5 (Version None)
Quarter: 2009Q3

REPORT INFORMATION
  Report Type: 
  Country: None (occurrence: None)
  Receive Date: 20090904
  Receipt Date: 20090828
  Transmission Date: 20100115
  Serious: Yes (Other)
  Sender: FDA-Public Use
  Company Number: JP-MERCK-0909USA00265

PATIENT
  Age: 71 Year
  Sex: Male
  Weight: 60 kg

DRUGS (10)
  1. PEPCID [Suspect]
     Route: 048
  2. REMIFENTANIL HYDROCHLORIDE [Suspect]
     Route: 065
  3. DIAZEPAM [Concomitant]
     Route: 048
  4. PROPOFOL [Concomitant]
     Route: 065
  5. VECURONIUM BROMIDE [Concomitant]
     Route: 065
  6. SEVOFLURANE [Concomitant]
     Route: 065
  7. MEPIVACAINE HYDROCHLORIDE [Concomitant]
     Route: 051
  8. ROPIVACAINE [Concomitant]
     Route: 065
  9. FENTANYL [Concomitant]
     Route: 065
  10. FENTANYL [Concomitant]
     Route: 065

REACTIONS (1)
  - MUSCULOSKELETAL STIFFNESS [None]
